FAERS Safety Report 19445152 (Version 3)
Quarter: 2021Q3

REPORT INFORMATION
  Report Type: Report from Study
  Country: GB (occurrence: GB)
  Receive Date: 20210621
  Receipt Date: 20210702
  Transmission Date: 20211014
  Serious: Yes (Life-Threatening, Hospitalization)
  Sender: FDA-Public Use
  Company Number: GB-CELGENEUS-GBR-20210604546

PATIENT
  Age: 69 Year
  Sex: Male
  Weight: 85.1 kg

DRUGS (2)
  1. ABRAXANE [Suspect]
     Active Substance: PACLITAXEL
     Indication: PANCREATIC CARCINOMA
     Dosage: 212.5 MILLIGRAM
     Route: 041
     Dates: start: 20210304, end: 20210610
  2. GEMCITABINE. [Suspect]
     Active Substance: GEMCITABINE
     Indication: PANCREATIC CARCINOMA
     Dosage: 1800 MILLIGRAM
     Route: 041
     Dates: start: 20210304, end: 20210610

REACTIONS (3)
  - Neutrophil count decreased [Recovered/Resolved with Sequelae]
  - Neutropenic colitis [Recovered/Resolved]
  - Sepsis [Not Recovered/Not Resolved]

NARRATIVE: CASE EVENT DATE: 20210614
